FAERS Safety Report 24366650 (Version 1)
Quarter: 2024Q3

REPORT INFORMATION
  Report Type: Spontaneous
  Country: US (occurrence: US)
  Receive Date: 20240926
  Receipt Date: 20240926
  Transmission Date: 20241017
  Serious: Yes (Hospitalization, Other)
  Sender: BRISTOL MYERS SQUIBB
  Company Number: US-BRISTOL-MYERS SQUIBB COMPANY-2024-152170

PATIENT
  Age: 77 Year
  Sex: Male

DRUGS (1)
  1. POMALYST [Suspect]
     Active Substance: POMALIDOMIDE
     Indication: Plasma cell myeloma
     Dosage: DAILY FOR 21DAYS ON, 7 DAYS OFF
     Route: 048
     Dates: start: 20230505

REACTIONS (4)
  - Nausea [Recovering/Resolving]
  - Pain in extremity [Recovering/Resolving]
  - Atrial fibrillation [Unknown]
  - Device malfunction [Unknown]
